FAERS Safety Report 7430095-2 (Version None)
Quarter: 2011Q2

REPORT INFORMATION
  Report Type: 
  Country: None (occurrence: None)
  Receive Date: 20110421
  Receipt Date: 20100624
  Transmission Date: 20111010
  Serious: No
  Sender: FDA-Public Use
  Company Number: US-ASTRAZENECA-2010SE29605

PATIENT
  Age: 684 Month
  Sex: Female
  Weight: 57.2 kg

DRUGS (1)
  1. TOPROL-XL [Suspect]
     Indication: HYPERTENSION
     Route: 048
     Dates: start: 20100604

REACTIONS (5)
  - HYPERHIDROSIS [None]
  - FATIGUE [None]
  - INCORRECT DOSE ADMINISTERED [None]
  - HOT FLUSH [None]
  - PALPITATIONS [None]
